FAERS Safety Report 15127784 (Version 1)
Quarter: 2018Q3

REPORT INFORMATION
  Report Type: Spontaneous
  Country: US (occurrence: US)
  Receive Date: 20180710
  Receipt Date: 20180710
  Transmission Date: 20181010
  Serious: No
  Sender: FDA-Public Use
  Company Number: US-LEO PHARMA-309781

PATIENT

DRUGS (1)
  1. PICATO [Suspect]
     Active Substance: INGENOL MEBUTATE
     Indication: POROKERATOSIS
     Route: 061

REACTIONS (2)
  - Application site reaction [Unknown]
  - Product use in unapproved indication [Unknown]
